FAERS Safety Report 6447219-6 (Version None)
Quarter: 2009Q4

REPORT INFORMATION
  Report Type: 
  Country: None (occurrence: None)
  Receive Date: 20091119
  Receipt Date: 20091117
  Transmission Date: 20100525
  Serious: Yes (Other)
  Sender: FDA-Public Use
  Company Number: FR-WYE-G04899609

PATIENT
  Sex: Female

DRUGS (2)
  1. TORISEL [Suspect]
     Indication: RENAL CANCER METASTATIC
     Dosage: 10 MIN OF AN INFUSION OF 25 MG INITIALLY PLANNED TO LAST 1 HOUR AND A HALF
     Route: 042
     Dates: start: 20091117, end: 20091117
  2. POLARAMINE [Concomitant]
     Indication: PREMEDICATION
     Dates: start: 20091117, end: 20091117

REACTIONS (6)
  - CHEST DISCOMFORT [None]
  - CONDITION AGGRAVATED [None]
  - FLUSHING [None]
  - HYPERTENSION [None]
  - INFUSION RELATED REACTION [None]
  - PARAESTHESIA MUCOSAL [None]
